FAERS Safety Report 6714512-9 (Version None)
Quarter: 2010Q2

REPORT INFORMATION
  Report Type: 
  Country: None (occurrence: None)
  Receive Date: 20100506
  Receipt Date: 20100503
  Transmission Date: 20101027
  Serious: Yes (Hospitalization)
  Sender: FDA-Public Use
  Company Number: US-GILEAD-2010-0028893

PATIENT
  Sex: Male

DRUGS (10)
  1. LETAIRIS [Suspect]
     Indication: PULMONARY ARTERIAL HYPERTENSION
     Route: 048
     Dates: start: 20091020
  2. ASPIRIN [Concomitant]
  3. FUROSEMIDE [Concomitant]
  4. ZAROXOLYN [Concomitant]
  5. METHADONE HCL [Concomitant]
  6. DIGOXIN [Concomitant]
  7. PRILOSEC [Concomitant]
  8. KLOR-CON [Concomitant]
  9. IRON [Concomitant]
  10. MULTI FOR HIM [Concomitant]

REACTIONS (1)
  - HEART VALVE REPLACEMENT [None]
